FAERS Safety Report 6722418-4 (Version None)
Quarter: 2010Q2

REPORT INFORMATION
  Report Type: 
  Country: None (occurrence: None)
  Receive Date: 20100512
  Receipt Date: 20100507
  Transmission Date: 20101027
  Serious: Yes (Death)
  Sender: FDA-Public Use
  Company Number: US-BAYER-201024658GPV

PATIENT
  Age: 60 Year
  Sex: Male

DRUGS (2)
  1. CIPROFLOXACIN [Suspect]
     Indication: SALMONELLOSIS
     Dosage: TOTAL DAILY DOSE: 800 MG
  2. INFLIXIMAB [Concomitant]
     Indication: RHEUMATOID ARTHRITIS

REACTIONS (1)
  - SALMONELLOSIS [None]
